FAERS Safety Report 15384868 (Version 1)
Quarter: 2018Q3

REPORT INFORMATION
  Report Type: Spontaneous
  Country: NL (occurrence: NL)
  Receive Date: 20180914
  Receipt Date: 20180914
  Transmission Date: 20181010
  Serious: Yes (Death, Other)
  Sender: FDA-Public Use
  Company Number: NL-AUROBINDO-AUR-APL-2018-045493

PATIENT
  Age: 30 Year
  Sex: Male
  Weight: 115 kg

DRUGS (2)
  1. CLOZAPINE 100 MG TABLET [Suspect]
     Active Substance: CLOZAPINE
     Indication: OBSESSIVE-COMPULSIVE DISORDER
     Dosage: 100 MILLIGRAM, (1 DD 1)
     Route: 065
     Dates: start: 20180622
  2. CLOZAPINE 100 MG TABLET [Suspect]
     Active Substance: CLOZAPINE
     Indication: PSYCHOTIC DISORDER

REACTIONS (2)
  - Sudden cardiac death [Fatal]
  - Fatigue [Unknown]

NARRATIVE: CASE EVENT DATE: 20180701
